FAERS Safety Report 10633794 (Version 1)
Quarter: 2014Q4

REPORT INFORMATION
  Report Type: Spontaneous
  Country: GB (occurrence: GB)
  Receive Date: 20141205
  Receipt Date: 20141205
  Transmission Date: 20150529
  Serious: Yes (Hospitalization, Other)
  Sender: FDA-Public Use
  Company Number: GB-TEVA-524334ISR

PATIENT
  Age: 85 Year
  Sex: Male

DRUGS (7)
  1. GLICLAZIDE [Concomitant]
     Active Substance: GLICLAZIDE
  2. QUETIAPINE FUMARATE. [Concomitant]
     Active Substance: QUETIAPINE FUMARATE
  3. ASPIRIN. [Concomitant]
     Active Substance: ASPIRIN
     Dosage: EVERY MORNING
  4. LAXIDO [Concomitant]
     Active Substance: POLYETHYLENE GLYCOL 3350\POTASSIUM CHLORIDE\SODIUM BICARBONATE\SODIUM CHLORIDE
  5. MOXONIDINE [Concomitant]
     Active Substance: MOXONIDINE
  6. RAMIPRIL. [Suspect]
     Active Substance: RAMIPRIL
     Indication: HYPERTENSION
     Route: 048
     Dates: end: 20130629
  7. SIMVASTATIN. [Concomitant]
     Active Substance: SIMVASTATIN
     Dosage: AT NIGHT

REACTIONS (3)
  - Accident [Recovered/Resolved]
  - Urinary tract infection [Recovered/Resolved]
  - Acute kidney injury [Recovered/Resolved]

NARRATIVE: CASE EVENT DATE: 20130629
